FAERS Safety Report 7291179-5 (Version None)
Quarter: 2011Q1

REPORT INFORMATION
  Report Type: 
  Country: None (occurrence: None)
  Receive Date: 20110214
  Receipt Date: 20110208
  Transmission Date: 20110831
  Serious: Yes (Disabling)
  Sender: FDA-Public Use
  Company Number: NO-MERCK-1102USA01271

PATIENT
  Age: 61 Year
  Sex: Male

DRUGS (7)
  1. MABTHERA [Concomitant]
     Indication: RHEUMATOID ARTHRITIS
     Route: 042
     Dates: start: 20090702
  2. METHOTREXATE [Concomitant]
     Indication: RHEUMATOID ARTHRITIS
     Route: 065
     Dates: start: 20090617
  3. TRAMADOL HCL [Concomitant]
     Indication: BACK PAIN
     Route: 048
     Dates: start: 20090701
  4. PREDNISOLONE [Suspect]
     Indication: RHEUMATOID ARTHRITIS
     Route: 065
  5. FOSAMAX [Suspect]
     Indication: OSTEOPOROSIS
     Route: 048
     Dates: start: 20000101, end: 20090101
  6. NYCOPLUS CALCIGRAN [Concomitant]
     Indication: OSTEOPOROSIS
     Route: 048
     Dates: start: 20000101
  7. COZAAR [Concomitant]
     Indication: HYPERTENSION
     Route: 048

REACTIONS (2)
  - RIB FRACTURE [None]
  - LUMBAR VERTEBRAL FRACTURE [None]
